FAERS Safety Report 13407163 (Version 3)
Quarter: 2017Q2

REPORT INFORMATION
  Report Type: Spontaneous
  Country: JP (occurrence: JP)
  Receive Date: 20170405
  Receipt Date: 20170630
  Transmission Date: 20170830
  Serious: Yes (Hospitalization)
  Sender: FDA-Public Use
  Company Number: JP-PFIZER INC-2017142222

PATIENT
  Age: 44 Year
  Sex: Female
  Weight: 35 kg

DRUGS (10)
  1. DEPAS [Concomitant]
     Active Substance: ETIZOLAM
     Indication: ABDOMINAL PAIN UPPER
     Dosage: 0.5 MG, 1X/DAY
     Route: 048
     Dates: start: 20170209, end: 20170324
  2. REFLEX [Concomitant]
     Active Substance: MIRTAZAPINE
     Dosage: 15 MG, 1X/DAY
     Dates: start: 20170203, end: 20170316
  3. DOGMATYL [Concomitant]
     Active Substance: SULPIRIDE
     Dosage: 50 MG, 1X/DAY
     Route: 048
     Dates: start: 20170310, end: 20170320
  4. TRAZODONE [Concomitant]
     Active Substance: TRAZODONE HYDROCHLORIDE
     Indication: INSOMNIA
     Dosage: 25 MG, 1X/DAY
     Route: 048
     Dates: start: 20170310, end: 20170324
  5. DEPAS [Concomitant]
     Active Substance: ETIZOLAM
     Indication: ANXIETY
     Dosage: 1 MG, 2X/DAY
     Route: 048
     Dates: start: 20170203, end: 20170208
  6. DOGMATYL [Concomitant]
     Active Substance: SULPIRIDE
     Indication: DEPRESSED MOOD
     Dosage: 50 MG, 3X/DAY
     Route: 048
     Dates: start: 20170217, end: 20170302
  7. EFFEXOR [Suspect]
     Active Substance: VENLAFAXINE HYDROCHLORIDE
     Dosage: 37.5 MG, 1X/DAY
     Route: 048
     Dates: start: 20170317, end: 20170319
  8. DOGMATYL [Concomitant]
     Active Substance: SULPIRIDE
     Indication: PROPHYLAXIS OF NAUSEA AND VOMITING
     Dosage: 50 MG, 2X/DAY
     Route: 048
     Dates: start: 20170303, end: 20170309
  9. DEPAS [Concomitant]
     Active Substance: ETIZOLAM
     Indication: PROPHYLAXIS OF NAUSEA AND VOMITING
  10. DOGMATYL [Concomitant]
     Active Substance: SULPIRIDE
     Dosage: 50 MG, 3X/DAY
     Route: 048
     Dates: start: 20170321, end: 20170324

REACTIONS (7)
  - Hepatic function abnormal [Unknown]
  - Nutritional condition abnormal [Unknown]
  - Nausea [Not Recovered/Not Resolved]
  - Parosmia [Not Recovered/Not Resolved]
  - Anxiety [Unknown]
  - Pyrexia [Not Recovered/Not Resolved]
  - Diarrhoea [Unknown]

NARRATIVE: CASE EVENT DATE: 20170318
